FAERS Safety Report 9022898 (Version 4)
Quarter: 2013Q1

REPORT INFORMATION
  Report Type: Spontaneous
  Country: US (occurrence: US)
  Receive Date: 20130120
  Receipt Date: 20130319
  Transmission Date: 20140127
  Serious: Yes (Death, Hospitalization, Other)
  Sender: FDA-Public Use
  Company Number: US-ALLERGAN-1216827US

PATIENT
  Age: 54 Year
  Sex: Female
  Weight: 53.97 kg

DRUGS (4)
  1. BOTOX? [Suspect]
     Indication: TORTICOLLIS
     Dosage: UNK UNK, SINGLE
     Route: 030
  2. LYRICA [Suspect]
     Indication: SPINAL OSTEOARTHRITIS
     Dosage: 100 MG, BID
     Route: 048
     Dates: start: 200611, end: 201203
  3. ZORFRAN [Concomitant]
     Indication: VOMITING
  4. MORPHINE [Concomitant]
     Indication: PAIN

REACTIONS (18)
  - Hypoaesthesia [Fatal]
  - Ageusia [Fatal]
  - Sensory loss [Fatal]
  - Drug ineffective [Unknown]
  - Muscle spasms [Unknown]
  - Disability [Unknown]
  - Pain [Unknown]
  - Anxiety disorder [Unknown]
  - Laceration [Fatal]
  - Exsanguination [Fatal]
  - Completed suicide [Fatal]
  - Hallucination [Unknown]
  - Decreased appetite [Unknown]
  - Sensory loss [Unknown]
  - Sensory loss [Unknown]
  - Vomiting [Unknown]
  - Faecal incontinence [Unknown]
  - Urinary incontinence [Unknown]
